FAERS Safety Report 20299208 (Version 16)
Quarter: 2022Q2

REPORT INFORMATION
  Report Type: Report from Study
  Country: CL (occurrence: None)
  Receive Date: 20220105
  Receipt Date: 20220509
  Transmission Date: 20220720
  Serious: Yes (Hospitalization)
  Sender: FDA-Public Use
  Company Number: CL-Eisai Medical Research-EC-2022-106292

PATIENT
  Age: 57 Year
  Sex: Female
  Weight: 82 kg

DRUGS (11)
  1. LENVATINIB [Suspect]
     Active Substance: LENVATINIB
     Indication: Clear cell renal cell carcinoma
     Route: 048
     Dates: start: 20211126, end: 20211226
  2. LENVATINIB [Suspect]
     Active Substance: LENVATINIB
     Route: 048
     Dates: start: 20220106
  3. PEMBROLIZUMAB [Suspect]
     Active Substance: PEMBROLIZUMAB
     Indication: Clear cell renal cell carcinoma
     Route: 041
     Dates: start: 20211126, end: 20211126
  4. PEMBROLIZUMAB [Suspect]
     Active Substance: PEMBROLIZUMAB
     Route: 041
     Dates: start: 20220105
  5. LOSARTAN [Concomitant]
     Active Substance: LOSARTAN
     Dates: start: 201601, end: 20220215
  6. ACETAMINOPHEN\TRAMADOL HYDROCHLORIDE [Concomitant]
     Active Substance: ACETAMINOPHEN\TRAMADOL HYDROCHLORIDE
     Dates: start: 202101, end: 20220114
  7. ACETAMINOPHEN [Concomitant]
     Active Substance: ACETAMINOPHEN
     Dates: start: 20211206, end: 20220114
  8. DOMPERIDONE [Concomitant]
     Active Substance: DOMPERIDONE
     Dates: start: 20211209, end: 20211228
  9. ATENOLOL [Concomitant]
     Active Substance: ATENOLOL
     Dates: start: 20211215, end: 20220125
  10. LORATADINE [Concomitant]
     Active Substance: LORATADINE
     Dates: start: 20211215, end: 20211228
  11. KETOROLAC TROMETHAMINE [Concomitant]
     Active Substance: KETOROLAC TROMETHAMINE
     Dates: start: 20211206, end: 20211209

REACTIONS (1)
  - Pancreatitis [Recovered/Resolved]

NARRATIVE: CASE EVENT DATE: 20211218
